FAERS Safety Report 7270799-8 (Version None)
Quarter: 2011Q1

REPORT INFORMATION
  Report Type: 
  Country: None (occurrence: None)
  Receive Date: 20110125
  Receipt Date: 20110125
  Transmission Date: 20110831
  Serious: Yes (Life-Threatening, Hospitalization)
  Sender: FDA-Public Use
  Company Number: None

PATIENT
  Age: 69 Year
  Sex: Male
  Weight: 56.2 kg

DRUGS (3)
  1. PROPOFOL [Suspect]
     Indication: HYPOTENSION
     Dosage: 80 MG OTHER IV
     Route: 042
     Dates: start: 20101004, end: 20101004
  2. PROPOFOL [Suspect]
     Indication: SURGERY
     Dosage: 80 MG OTHER IV
     Route: 042
     Dates: start: 20101004, end: 20101004
  3. PROPOFOL [Suspect]
     Indication: CARDIAC ARREST
     Dosage: 80 MG OTHER IV
     Route: 042
     Dates: start: 20101004, end: 20101004

REACTIONS (8)
  - HYPOKINESIA [None]
  - VENTRICULAR EXTRASYSTOLES [None]
  - HYPERTENSION [None]
  - ELECTROCARDIOGRAM ST SEGMENT ELEVATION [None]
  - DRUG INEFFECTIVE [None]
  - HYPOTENSION [None]
  - TACHYCARDIA [None]
  - BLOOD POTASSIUM INCREASED [None]
